FAERS Safety Report 19828432 (Version 9)
Quarter: 2022Q4

REPORT INFORMATION
  Report Type: Spontaneous
  Country: US (occurrence: None)
  Receive Date: 20210914
  Receipt Date: 20221220
  Transmission Date: 20230113
  Serious: Yes (Other)
  Sender: FDA-Public Use
  Company Number: US-ROCHE-2908539

PATIENT
  Age: 35 Year
  Sex: Male
  Weight: 88.530 kg

DRUGS (3)
  1. HEMLIBRA [Suspect]
     Active Substance: EMICIZUMAB-KXWH
     Indication: Factor VIII deficiency
     Dosage: DOSE STRENGTH: 50MG/ML
     Route: 058
     Dates: start: 20210723
  2. HEMLIBRA [Suspect]
     Active Substance: EMICIZUMAB-KXWH
     Dosage: DOSE STRENGTH: 150 MG/ML
     Route: 058
     Dates: start: 202108
  3. HEMLIBRA [Suspect]
     Active Substance: EMICIZUMAB-KXWH
     Dosage: DOSE: 135/0.9 MG/ML
     Route: 058
     Dates: start: 20211112

REACTIONS (10)
  - Haemorrhage [Recovered/Resolved]
  - Weight increased [Unknown]
  - Muscle haemorrhage [Recovered/Resolved]
  - Haemorrhage [Recovered/Resolved]
  - Haemorrhage [Recovered/Resolved]
  - Haemorrhage [Recovered/Resolved]
  - Haemorrhage [Unknown]
  - Inflammation [Recovered/Resolved]
  - Pain [Recovered/Resolved]
  - Haemorrhage [Recovered/Resolved]

NARRATIVE: CASE EVENT DATE: 20220429
